FAERS Safety Report 16291066 (Version 1)
Quarter: 2019Q2

REPORT INFORMATION
  Report Type: Spontaneous
  Country: US (occurrence: US)
  Receive Date: 20190509
  Receipt Date: 20190509
  Transmission Date: 20190711
  Serious: Yes (Hospitalization, Disabling)
  Sender: FDA-Public Use
  Company Number: US-009507513-1905USA000439

PATIENT
  Sex: Female

DRUGS (1)
  1. STROMECTOL [Suspect]
     Active Substance: IVERMECTIN
     Indication: BABESIOSIS
     Dosage: UNK, BID (TWICE DAILY)
     Route: 048

REACTIONS (6)
  - Road traffic accident [Not Recovered/Not Resolved]
  - Limb operation [Not Recovered/Not Resolved]
  - Product dose omission [Unknown]
  - Spinal operation [Not Recovered/Not Resolved]
  - Product availability issue [Unknown]
  - Product use in unapproved indication [Unknown]
